FAERS Safety Report 8298240-7 (Version None)
Quarter: 2012Q2

REPORT INFORMATION
  Report Type: 
  Country: None (occurrence: None)
  Receive Date: 20120419
  Receipt Date: 20120220
  Transmission Date: 20120825
  Serious: No
  Sender: FDA-Public Use
  Company Number: US-BRISTOL-MYERS SQUIBB COMPANY-16409260

PATIENT
  Sex: Male

DRUGS (1)
  1. YERVOY [Suspect]
     Dosage: NO OF DOSES:3
     Dates: start: 20120101

REACTIONS (3)
  - PRURITUS [None]
  - NAUSEA [None]
  - DIARRHOEA [None]
